FAERS Safety Report 8123337-1 (Version None)
Quarter: 2012Q1

REPORT INFORMATION
  Report Type: 
  Country: None (occurrence: None)
  Receive Date: 20120208
  Receipt Date: 20061018
  Transmission Date: 20120608
  Serious: Yes (Hospitalization)
  Sender: FDA-Public Use
  Company Number: JP-AMGEN-US180069

PATIENT
  Age: 75 Year
  Sex: Female

DRUGS (4)
  1. PREDNISOLONE [Concomitant]
     Dosage: 7.5 MG, QD
     Route: 048
     Dates: end: 20060401
  2. ETANERCEPT [Suspect]
     Indication: RHEUMATOID ARTHRITIS
     Dosage: 50 MG, QWK
     Route: 058
     Dates: start: 20060304, end: 20060329
  3. TACROLIMUS [Concomitant]
     Dosage: 1.5 MG, QD
     Route: 048
     Dates: start: 20060222, end: 20060401
  4. ISONIAZID [Concomitant]
     Dosage: UNK UNK, UNK
     Route: 048

REACTIONS (1)
  - HYPONATRAEMIA [None]
